FAERS Safety Report 18962510 (Version 1)
Quarter: 2021Q1

REPORT INFORMATION
  Report Type: Report from Study
  Country: DE (occurrence: DE)
  Receive Date: 20210303
  Receipt Date: 20210303
  Transmission Date: 20210420
  Serious: Yes (Life-Threatening, Hospitalization, Other)
  Sender: FDA-Public Use
  Company Number: DE-TAKEDA-DE201944123

PATIENT
  Age: 50 Year
  Sex: Female
  Weight: 80 kg

DRUGS (8)
  1. TEDUGLUTIDE [Suspect]
     Active Substance: TEDUGLUTIDE
     Indication: SHORT-BOWEL SYNDROME
     Dosage: 0.40 MILLILITER, 1X/DAY:QD
     Route: 058
     Dates: start: 20160412
  2. TEDUGLUTIDE [Suspect]
     Active Substance: TEDUGLUTIDE
     Dosage: 0.36 MILLILITER, QD
     Route: 058
     Dates: start: 20210226
  3. TEDUGLUTIDE [Suspect]
     Active Substance: TEDUGLUTIDE
     Dosage: 0.36 MILLILITER, QD
     Route: 058
     Dates: start: 20210226
  4. TEDUGLUTIDE [Suspect]
     Active Substance: TEDUGLUTIDE
     Dosage: 0.36 MILLILITER, QD
     Route: 058
     Dates: start: 20210226
  5. TEDUGLUTIDE [Suspect]
     Active Substance: TEDUGLUTIDE
     Indication: SHORT-BOWEL SYNDROME
     Dosage: 0.40 MILLILITER, 1X/DAY:QD
     Route: 058
     Dates: start: 20160412
  6. TEDUGLUTIDE [Suspect]
     Active Substance: TEDUGLUTIDE
     Indication: SHORT-BOWEL SYNDROME
     Dosage: 0.40 MILLILITER, 1X/DAY:QD
     Route: 058
     Dates: start: 20160412
  7. TEDUGLUTIDE [Suspect]
     Active Substance: TEDUGLUTIDE
     Indication: SHORT-BOWEL SYNDROME
     Dosage: 0.40 MILLILITER, 1X/DAY:QD
     Route: 058
     Dates: start: 20160412
  8. TEDUGLUTIDE [Suspect]
     Active Substance: TEDUGLUTIDE
     Dosage: 0.36 MILLILITER, QD
     Route: 058
     Dates: start: 20210226

REACTIONS (5)
  - Muscle spasms [Recovered/Resolved]
  - Depressed mood [Recovering/Resolving]
  - Device related infection [Recovered/Resolved]
  - Sepsis [Recovered/Resolved]
  - Iron deficiency [Recovered/Resolved]

NARRATIVE: CASE EVENT DATE: 20191204
